FAERS Safety Report 22640049 (Version 3)
Quarter: 2024Q1

REPORT INFORMATION
  Report Type: Report from Study
  Country: US (occurrence: US)
  Receive Date: 20230626
  Receipt Date: 20240328
  Transmission Date: 20240410
  Serious: No
  Sender: FDA-Public Use
  Company Number: US-002147023-NVSC2023US142931

PATIENT
  Sex: Female

DRUGS (1)
  1. LEQVIO [Suspect]
     Active Substance: INCLISIRAN SODIUM
     Indication: Product used for unknown indication
     Dosage: UNK
     Route: 058

REACTIONS (5)
  - Fatigue [Unknown]
  - Pain [Unknown]
  - Oropharyngeal pain [Unknown]
  - Nausea [Unknown]
  - Injection site pain [Recovered/Resolved]
